FAERS Safety Report 11485715 (Version 3)
Quarter: 2015Q4

REPORT INFORMATION
  Report Type: Spontaneous
  Country: DE (occurrence: DE)
  Receive Date: 20150910
  Receipt Date: 20151021
  Transmission Date: 20160304
  Serious: Yes (Death, Other)
  Sender: FDA-Public Use
  Company Number: DE-ROCHE-1631150

PATIENT
  Age: 47 Year
  Sex: Male
  Weight: 82 kg

DRUGS (2)
  1. DICLOFENAC [Concomitant]
     Active Substance: DICLOFENAC
     Dosage: RETARD
     Route: 065
  2. ROACTEMRA [Suspect]
     Active Substance: TOCILIZUMAB
     Indication: RHEUMATOID ARTHRITIS
     Dosage: 648 MG MONTHLY DOSE
     Route: 058
     Dates: start: 20140723

REACTIONS (13)
  - Tooth abscess [Unknown]
  - Abdominal pain [Unknown]
  - Diarrhoea [Unknown]
  - Sepsis [Fatal]
  - Oropharyngeal pain [Fatal]
  - Cellulitis [Unknown]
  - Epiglottitis [Fatal]
  - Laryngeal oedema [Fatal]
  - Dyspnoea [Unknown]
  - Headache [Unknown]
  - Brain injury [Fatal]
  - Low density lipoprotein increased [Unknown]
  - Weight increased [Unknown]

NARRATIVE: CASE EVENT DATE: 20150726
